FAERS Safety Report 19430981 (Version 2)
Quarter: 2021Q2

REPORT INFORMATION
  Report Type: Spontaneous
  Country: IT (occurrence: IT)
  Receive Date: 20210617
  Receipt Date: 20210630
  Transmission Date: 20210717
  Serious: Yes (Death, Other)
  Sender: FDA-Public Use
  Company Number: IT-TEVA-2021-IT-1922328

PATIENT
  Age: 72 Year
  Sex: Male

DRUGS (4)
  1. 5 FLUOROURACIL [Suspect]
     Active Substance: FLUOROURACIL
     Indication: METASTATIC SQUAMOUS CELL CARCINOMA
     Dosage: 800 MG/M2 DAILY; FROM DAY 1 TO DAY 5 EVERY 21 DAYS
     Route: 065
  2. CARBOPLATIN. [Suspect]
     Active Substance: CARBOPLATIN
     Indication: METASTATIC SQUAMOUS CELL CARCINOMA
     Dosage: DAY 1
     Route: 065
  3. CETUXIMAB. [Suspect]
     Active Substance: CETUXIMAB
     Indication: METASTATIC SQUAMOUS CELL CARCINOMA
     Dosage: LOADING DOSE FOR THE FIRST CYCLE AND THEN AT THE STANDARD DOSE OF 250 MG/M 2 WEEKLY.
     Route: 065
  4. CETUXIMAB. [Suspect]
     Active Substance: CETUXIMAB
     Dosage: STANDARD DOSE OF 250 MG/M 2 WEEKLY
     Route: 065

REACTIONS (3)
  - Nephropathy toxic [Unknown]
  - Anaemia [Unknown]
  - Electrolyte imbalance [Unknown]
